FAERS Safety Report 19813698 (Version 1)
Quarter: 2021Q3

REPORT INFORMATION
  Report Type: Spontaneous
  Country: US (occurrence: US)
  Receive Date: 20210909
  Receipt Date: 20210909
  Transmission Date: 20211014
  Serious: Yes (Other)
  Sender: FDA-Public Use
  Company Number: None

PATIENT

DRUGS (2)
  1. LEVOFLOXACIN 500MG [Suspect]
     Active Substance: LEVOFLOXACIN
     Indication: POST PROCEDURAL INFECTION
     Dosage: ?          QUANTITY:1 TABLET(S);?
     Route: 048
     Dates: start: 20210901, end: 20210909
  2. TRAZODONE [Suspect]
     Active Substance: TRAZODONE HYDROCHLORIDE
     Indication: SLEEP DISORDER
     Dosage: ?          QUANTITY:4 TABLET(S);?
     Route: 048
     Dates: start: 20210526, end: 20210527

REACTIONS (6)
  - Tachycardia [None]
  - Illness [None]
  - Visual impairment [None]
  - Product substitution issue [None]
  - Drug ineffective [None]
  - Infection [None]

NARRATIVE: CASE EVENT DATE: 20210901
